FAERS Safety Report 18175596 (Version 2)
Quarter: 2022Q4

REPORT INFORMATION
  Report Type: Spontaneous
  Country: US (occurrence: US)
  Receive Date: 20200820
  Receipt Date: 20221130
  Transmission Date: 20230113
  Serious: Yes (Other)
  Sender: FDA-Public Use
  Company Number: US-SUN PHARMACEUTICAL INDUSTRIES LTD-2020R1-257611

PATIENT
  Age: 16 Year
  Sex: Female
  Weight: 40 kg

DRUGS (1)
  1. TOBRAMYCIN [Interacting]
     Active Substance: TOBRAMYCIN
     Indication: Pseudomonas infection
     Dosage: UNK

REACTIONS (2)
  - Drug-disease interaction [Unknown]
  - Drug level increased [Unknown]
